FAERS Safety Report 9284151 (Version 2)
Quarter: 2013Q2

REPORT INFORMATION
  Report Type: Spontaneous
  Country: JP (occurrence: JP)
  Receive Date: 20130510
  Receipt Date: 20130611
  Transmission Date: 20140414
  Serious: Yes (Other)
  Sender: FDA-Public Use
  Company Number: JP-SPECTRUM PHARMACEUTICALS, INC.-13-Z-JP-00099

PATIENT
  Age: 64 Year
  Sex: Male
  Weight: 52 kg

DRUGS (5)
  1. ZEVALIN [Suspect]
     Indication: NON-HODGKIN^S LYMPHOMA
     Dosage: 806 MBQ, SINGLE
     Route: 042
     Dates: start: 20130115, end: 20130115
  2. RITUXIMAB [Suspect]
     Indication: NON-HODGKIN^S LYMPHOMA
     Dosage: 400 MG, QD
     Route: 041
     Dates: start: 20130115, end: 20130115
  3. RITUXIMAB [Suspect]
     Dosage: 400 MG, QD
     Route: 041
     Dates: start: 20130108, end: 20130108
  4. DIFLUCAN [Concomitant]
     Indication: PRODUCT USED FOR UNKNOWN INDICATION
     Dosage: UNK
     Route: 065
  5. BAKTAR [Concomitant]
     Indication: PRODUCT USED FOR UNKNOWN INDICATION
     Dosage: UNK
     Route: 065

REACTIONS (5)
  - Pneumonia fungal [Recovered/Resolved]
  - Neutrophil count decreased [Unknown]
  - Platelet count decreased [Unknown]
  - Red blood cell count decreased [Unknown]
  - Haemoglobin decreased [Unknown]
